FAERS Safety Report 8369563-8 (Version None)
Quarter: 2012Q2

REPORT INFORMATION
  Report Type: 
  Country: None (occurrence: None)
  Receive Date: 20120518
  Receipt Date: 20120514
  Transmission Date: 20120825
  Serious: Yes (Hospitalization, Other)
  Sender: FDA-Public Use
  Company Number: US-BAYER-2011-107998

PATIENT
  Age: 48 Year
  Sex: Female
  Weight: 80.272 kg

DRUGS (3)
  1. IRON TABLETS [Concomitant]
  2. DROSPIRENONE AND ETHINYL ESTRADIOL [Suspect]
     Dosage: UNK
     Dates: start: 20080701, end: 20091101
  3. YASMIN [Suspect]
     Dosage: UNK
     Dates: start: 20070901, end: 20080801

REACTIONS (10)
  - CEREBROVASCULAR ACCIDENT [None]
  - GENERAL PHYSICAL HEALTH DETERIORATION [None]
  - PARAESTHESIA [None]
  - NEUROMYOPATHY [None]
  - EMOTIONAL DISTRESS [None]
  - MUSCULAR WEAKNESS [None]
  - PAIN [None]
  - INFARCTION [None]
  - INJURY [None]
  - ANXIETY [None]
